FAERS Safety Report 10312835 (Version 1)
Quarter: 2014Q3

REPORT INFORMATION
  Report Type: Spontaneous
  Country: US (occurrence: None)
  Receive Date: 20140717
  Receipt Date: 20140717
  Transmission Date: 20150326
  Serious: No
  Sender: FDA-Public Use
  Company Number: None

PATIENT
  Age: 21 Year
  Sex: Male

DRUGS (1)
  1. BUPROPION [Suspect]
     Active Substance: BUPROPION
     Indication: SCHIZOPHRENIA
     Dosage: WELLBUTRIN, TWICE DAILY, TAKEN BY MOUTH
     Route: 048
     Dates: start: 20140614, end: 20140702

REACTIONS (1)
  - Drug therapy [None]

NARRATIVE: CASE EVENT DATE: 20140614
